FAERS Safety Report 10246208 (Version 1)
Quarter: 2014Q2

REPORT INFORMATION
  Report Type: Spontaneous
  Country: US (occurrence: US)
  Receive Date: 20140619
  Receipt Date: 20140619
  Transmission Date: 20141212
  Serious: Yes (Hospitalization)
  Sender: FDA-Public Use
  Company Number: US-BAYER-2014-089587

PATIENT
  Age: 24 Year
  Sex: Female
  Weight: 79 kg

DRUGS (6)
  1. YAZ [Suspect]
  2. YASMIN [Suspect]
     Indication: ENDOMETRIOSIS
  3. ANAPROX [Concomitant]
     Dosage: Q (EVERY) 6-8 HOURS PRN
     Route: 048
  4. HYDROCORTISONE [Concomitant]
     Indication: VULVOVAGINAL SWELLING
     Dosage: UNK
     Dates: start: 20031014
  5. ALLEGRA [Concomitant]
     Dosage: 180 MG EVERY DAY, PRN
     Route: 048
     Dates: start: 20031025
  6. ESTRACE [Concomitant]
     Indication: GENITAL DISCOMFORT
     Dosage: UNK
     Dates: start: 20031014

REACTIONS (1)
  - Pulmonary embolism [Recovered/Resolved]
